FAERS Safety Report 24916477 (Version 1)
Quarter: 2025Q1

REPORT INFORMATION
  Report Type: Report from Study
  Country: US (occurrence: US)
  Receive Date: 20250203
  Receipt Date: 20250203
  Transmission Date: 20250409
  Serious: Yes (Hospitalization)
  Sender: ABBVIE
  Company Number: US-ABBVIE-6110075

PATIENT
  Sex: Female

DRUGS (1)
  1. RINVOQ [Suspect]
     Active Substance: UPADACITINIB
     Indication: Product used for unknown indication
     Route: 048
     Dates: start: 20240701

REACTIONS (5)
  - Systemic lupus erythematosus [Unknown]
  - Muscle disorder [Unknown]
  - Gastrointestinal inflammation [Unknown]
  - Dermatomyositis [Unknown]
  - Autoimmune disorder [Unknown]
